FAERS Safety Report 5583714-X (Version None)
Quarter: 2008Q1

REPORT INFORMATION
  Report Type: 
  Country: None (occurrence: None)
  Receive Date: 20080102
  Receipt Date: 20071217
  Transmission Date: 20080703
  Serious: Yes (Hospitalization)
  Sender: FDA-Public Use
  Company Number: B0501053A

PATIENT
  Age: 58 Year
  Sex: Female

DRUGS (6)
  1. ACETAMINOPHEN [Suspect]
     Indication: OSTEOARTHRITIS
     Dosage: 650 MG/ PER DAY/ ORAL
     Route: 048
  2. PAXIL [Suspect]
     Dosage: ORAL
     Route: 048
  3. LORAZEPAM [Concomitant]
  4. ATENOLOL [Concomitant]
  5. HYDROXYZINE [Concomitant]
  6. VALERIAN ROOT [Concomitant]

REACTIONS (2)
  - HEPATOCELLULAR INJURY [None]
  - HEPATOTOXICITY [None]
